FAERS Safety Report 4474027-8 (Version None)
Quarter: 2004Q4

REPORT INFORMATION
  Report Type: 
  Country: None (occurrence: None)
  Receive Date: 20041008
  Receipt Date: 20040921
  Transmission Date: 20050328
  Serious: Yes (Hospitalization)
  Sender: FDA-Public Use
  Company Number: US_0409105770

PATIENT
  Age: 78 Year
  Sex: Female
  Weight: 50 kg

DRUGS (22)
  1. HUMATROPE [Suspect]
     Indication: GROWTH HORMONE DEFICIENCY
     Dosage: 33 U/L DAY
     Dates: start: 20011018, end: 20020822
  2. HUMALOG MIX 75/25 [Concomitant]
  3. L-THYROXINE [Concomitant]
  4. CORTEF [Concomitant]
  5. TYLENOL W/ CODEINE [Concomitant]
  6. MONOPRIL [Concomitant]
  7. VERAPAMIL [Concomitant]
  8. AMITRIPTYLINE HCL [Concomitant]
  9. PRILOSEC [Concomitant]
  10. ASPIRIN [Concomitant]
  11. ATROVENT [Concomitant]
  12. CALCIUM CITRATE [Concomitant]
  13. MULTI-VITAMIN [Concomitant]
  14. VITAMIN E [Concomitant]
  15. CAPTOPRIL (CAPTOPRIL BIOCHEMIE) [Concomitant]
  16. WARFARIN SODIUM [Concomitant]
  17. MILK OF MAGNESIA TAB [Concomitant]
  18. COLACE (DOCUSATE SODIUM) [Concomitant]
  19. SENNA ALEXANDRINA LIQUID EXTRACT [Concomitant]
  20. BUSPIRONE [Concomitant]
  21. AVANDIA [Concomitant]
  22. KLOR-DUR (POTASSIUM CHLORIDE) [Concomitant]

REACTIONS (20)
  - ABDOMINAL PAIN LOWER [None]
  - ADRENAL INSUFFICIENCY [None]
  - AMNESIA [None]
  - ARTHRALGIA [None]
  - BLOOD PRESSURE INCREASED [None]
  - BLOOD PRESSURE SYSTOLIC INCREASED [None]
  - CHEST PAIN [None]
  - COLON CANCER [None]
  - DYSPEPSIA [None]
  - HAEMATOCRIT DECREASED [None]
  - HAEMOGLOBIN DECREASED [None]
  - HYPOGLYCAEMIA [None]
  - INFREQUENT BOWEL MOVEMENTS [None]
  - LOSS OF CONSCIOUSNESS [None]
  - MESENTERIC VEIN THROMBOSIS [None]
  - NAUSEA [None]
  - NEPHROLITHIASIS [None]
  - SYNCOPE [None]
  - VENTRICULAR HYPERTROPHY [None]
  - VOMITING [None]
